FAERS Safety Report 5346079-4 (Version None)
Quarter: 2007Q2

REPORT INFORMATION
  Report Type: 
  Country: None (occurrence: None)
  Receive Date: 20070605
  Receipt Date: 20060925
  Transmission Date: 20071010
  Serious: Yes (Life-Threatening, Disabling)
  Sender: FDA-Public Use
  Company Number: US-BAXTER-2006BH013690

PATIENT
  Weight: 4 kg

DRUGS (1)
  1. OXYTOCIN [Suspect]
     Indication: MATERNAL DRUGS AFFECTING FOETUS
     Dosage: DOSE UNIT:UNKNOWN
     Route: 065

REACTIONS (4)
  - ASPHYXIA [None]
  - BRADYCARDIA FOETAL [None]
  - CEREBRAL PALSY [None]
  - CONVULSION [None]
